FAERS Safety Report 5493251-9 (Version None)
Quarter: 2007Q4

REPORT INFORMATION
  Report Type: 
  Country: None (occurrence: None)
  Receive Date: 20071022
  Receipt Date: 20071022
  Transmission Date: 20080405
  Serious: Yes (Other)
  Sender: FDA-Public Use
  Company Number: None

PATIENT
  Sex: Male
  Weight: 81.6475 kg

DRUGS (4)
  1. CARTIA XT [Suspect]
     Indication: MITRAL VALVE PROLAPSE
     Dosage: 300MG 1X DAILY ORAL
     Route: 048
     Dates: start: 20061001
  2. SINGULAIR [Concomitant]
  3. ASPIRIN [Concomitant]
  4. WARFARIN SODIUM [Concomitant]

REACTIONS (2)
  - JOINT SWELLING [None]
  - OEDEMA [None]
